FAERS Safety Report 11308718 (Version 2)
Quarter: 2015Q3

REPORT INFORMATION
  Report Type: Spontaneous
  Country: US (occurrence: US)
  Receive Date: 20150724
  Receipt Date: 20150810
  Transmission Date: 20151125
  Serious: Yes (Death, Other)
  Sender: FDA-Public Use
  Company Number: US-BRISTOL-MYERS SQUIBB COMPANY-BMS-2015-047105

PATIENT
  Sex: Male

DRUGS (1)
  1. OPDIVO [Suspect]
     Active Substance: NIVOLUMAB
     Indication: MANTLE CELL LYMPHOMA
     Dosage: 177 MG, Q2WK
     Route: 042
     Dates: start: 20150511, end: 20150527

REACTIONS (1)
  - Malignant neoplasm progression [Fatal]
